FAERS Safety Report 4707075-0 (Version None)
Quarter: 2005Q3

REPORT INFORMATION
  Report Type: 
  Country: None (occurrence: None)
  Receive Date: 20050701
  Receipt Date: 20050613
  Transmission Date: 20060218
  Serious: Yes (Hospitalization)
  Sender: FDA-Public Use
  Company Number: 2005BH000268

PATIENT
  Age: 52 Year
  Sex: Female

DRUGS (7)
  1. DIANEAL [Suspect]
     Dosage: 2 L; 5X A DAY; IP
     Route: 033
     Dates: start: 20050527
  2. DIANEAL [Suspect]
     Dosage: 2 L; 4X A DAY; IP
     Route: 033
     Dates: start: 20050527
  3. ATENOLOL [Concomitant]
  4. PHOSLO [Concomitant]
  5. FOLIC ACID [Concomitant]
  6. FERROUS SULFATE TAB [Concomitant]
  7. VICODIN [Concomitant]

REACTIONS (4)
  - PRURITUS [None]
  - RASH [None]
  - RASH MACULAR [None]
  - URINARY TRACT INFECTION [None]
